FAERS Safety Report 4630895-8 (Version None)
Quarter: 2005Q2

REPORT INFORMATION
  Report Type: 
  Country: None (occurrence: None)
  Receive Date: 20050407
  Receipt Date: 20050407
  Transmission Date: 20051028
  Serious: Yes (Hospitalization)
  Sender: FDA-Public Use
  Company Number: None

PATIENT
  Age: 56 Year
  Sex: Female
  Weight: 61 kg

DRUGS (2)
  1. OXALIPLATIN 130 MG/M2 IV [Suspect]
     Indication: SMALL INTESTINE CARCINOMA METASTATIC
     Dates: start: 20050311
  2. CAPECITABINE 1500 MG /M2 PO [Suspect]
     Dates: start: 20050311

REACTIONS (3)
  - BLOOD POTASSIUM DECREASED [None]
  - DISEASE PROGRESSION [None]
  - JAUNDICE [None]
